FAERS Safety Report 7250193-6 (Version None)
Quarter: 2011Q1

REPORT INFORMATION
  Report Type: 
  Country: None (occurrence: None)
  Receive Date: 20110128
  Receipt Date: 20101216
  Transmission Date: 20110831
  Serious: Yes (Hospitalization, Other)
  Sender: FDA-Public Use
  Company Number: US-BAYER-201037717NA

PATIENT
  Sex: Female
  Weight: 79.365 kg

DRUGS (4)
  1. OCELLA [Suspect]
     Indication: ACNE
  2. UNCODEABLE ^UNCLASSIFIABLE^ [Concomitant]
     Indication: CONTRACEPTION
     Dosage: UNK
     Dates: start: 20070101, end: 20080101
  3. YAZ [Suspect]
     Indication: ORAL CONTRACEPTION
     Dosage: UNK
     Dates: start: 20070401, end: 20070801
  4. YASMIN [Suspect]
     Indication: ORAL CONTRACEPTION
     Dosage: UNK
     Dates: start: 20070101

REACTIONS (17)
  - NAUSEA [None]
  - ASTHENIA [None]
  - HAEMATOCHEZIA [None]
  - INJURY [None]
  - GALLBLADDER DISORDER [None]
  - ABDOMINAL TENDERNESS [None]
  - BILIARY DYSKINESIA [None]
  - PAIN [None]
  - ABDOMINAL DISTENSION [None]
  - POLYURIA [None]
  - SOMNOLENCE [None]
  - ABDOMINAL PAIN [None]
  - GALLBLADDER PAIN [None]
  - DYSPEPSIA [None]
  - RECTAL HAEMORRHAGE [None]
  - POLYDIPSIA [None]
  - FATIGUE [None]
